FAERS Safety Report 16584538 (Version 1)
Quarter: 2019Q3

REPORT INFORMATION
  Report Type: Spontaneous
  Country: DE (occurrence: DE)
  Receive Date: 20190717
  Receipt Date: 20190717
  Transmission Date: 20191004
  Serious: Yes (Life-Threatening, Hospitalization)
  Sender: FDA-Public Use
  Company Number: DE-ACCORD-138620

PATIENT
  Age: 77 Year
  Sex: Male
  Weight: 67 kg

DRUGS (17)
  1. NOVALGIN [Concomitant]
     Dosage: STRENGTH : 1 G, 1-1-1-0
     Route: 048
  2. PANTOZOL [Concomitant]
     Active Substance: PANTOPRAZOLE SODIUM
     Dosage: STRENGTH : 40 MG, 1-0-1-0
     Route: 048
  3. PREGABALIN. [Concomitant]
     Active Substance: PREGABALIN
     Dosage: 75 MG, 1-0-1-0
     Route: 048
  4. KREON [Concomitant]
     Active Substance: PANCRELIPASE
     Dosage: 50000 IE, 1-1-1-0
     Route: 048
  5. TARGIN [Concomitant]
     Active Substance: NALOXONE HYDROCHLORIDE\OXYCODONE HYDROCHLORIDE
     Dosage: STRENGTH : 10/5 MG, 1-0-1-0,
     Route: 048
  6. AMLODIPINE [Concomitant]
     Active Substance: AMLODIPINE BESYLATE
     Dosage: 5 MG, 1-0-1-0
     Route: 048
  7. ALLOPURINOL. [Concomitant]
     Active Substance: ALLOPURINOL
     Dosage: 100 MG, 1-0-0-0
     Route: 048
  8. IODINE. [Concomitant]
     Active Substance: IODINE
     Dosage: STRENGTH : 200 UG, 1-0-0-0, TABLETTEN
     Route: 048
  9. IRON [Concomitant]
     Active Substance: IRON
     Dosage: STRENGTH : 100 MG, 1-0-0-0
     Route: 048
  10. INSULIN [Concomitant]
     Active Substance: INSULIN NOS
     Dosage: SCHEME
     Route: 058
  11. CLOPIDOGREL [Suspect]
     Active Substance: CLOPIDOGREL BISULFATE
     Indication: PRODUCT USED FOR UNKNOWN INDICATION
     Dosage: 75 MG, 0-0-1-0
     Route: 048
  12. EFFENTORA [Concomitant]
     Active Substance: FENTANYL CITRATE
     Dosage: 100 UG, 0-0-1-0
     Route: 048
  13. METOPROLOL. [Concomitant]
     Active Substance: METOPROLOL
     Dosage: 95 MG, 0-0-1-0
     Route: 048
  14. IRBESARTAN. [Concomitant]
     Active Substance: IRBESARTAN
     Dosage: 300 MG, 1-0-0-0
     Route: 048
  15. SIMVASTATIN. [Concomitant]
     Active Substance: SIMVASTATIN
     Dosage: 40 MG, 0-0-1-0
     Route: 048
  16. SPIRONOLACTONE. [Concomitant]
     Active Substance: SPIRONOLACTONE
     Dosage: 50 MG, 1-0-0-0
     Route: 048
  17. HYDROCHLOROTHIAZIDE. [Concomitant]
     Active Substance: HYDROCHLOROTHIAZIDE
     Dosage: 25 MG, 1-0-0-0
     Route: 048

REACTIONS (5)
  - Fatigue [Unknown]
  - Asthenia [Unknown]
  - Preternatural anus [Unknown]
  - Diarrhoea haemorrhagic [Unknown]
  - Abdominal pain [Unknown]
